FAERS Safety Report 26188226 (Version 2)
Quarter: 2025Q4

REPORT INFORMATION
  Report Type: Report from Study
  Country: US (occurrence: US)
  Receive Date: 20251222
  Receipt Date: 20251231
  Transmission Date: 20260118
  Serious: No
  Sender: MALLINCKRODT
  Company Number: US-MALLINCKRODT-MNK202508092

PATIENT
  Age: 78 Year
  Sex: Female

DRUGS (1)
  1. CORTICOTROPIN [Suspect]
     Active Substance: CORTICOTROPIN
     Indication: Optic neuritis
     Route: 058
     Dates: start: 202504

REACTIONS (7)
  - Wheezing [Unknown]
  - Asthma [Recovered/Resolved]
  - Dyspnoea exertional [Unknown]
  - Dysphonia [Unknown]
  - Ecchymosis [Unknown]
  - Fluid retention [Unknown]
  - Blood glucose increased [Unknown]

NARRATIVE: CASE EVENT DATE: 20250101
